FAERS Safety Report 21762631 (Version 1)
Quarter: 2022Q4

REPORT INFORMATION
  Report Type: Spontaneous
  Country: IN (occurrence: IN)
  Receive Date: 20221221
  Receipt Date: 20221221
  Transmission Date: 20230113
  Serious: Yes (Other)
  Sender: FDA-Public Use
  Company Number: IN-ViiV Healthcare Limited-IN2022GSK186259

PATIENT

DRUGS (3)
  1. LAMIVUDINE [Suspect]
     Active Substance: LAMIVUDINE
     Indication: HIV infection
     Dosage: 300 MG, FOR THE PAST 2 MONTHS
  2. TENOFOVIR DISOPROXIL FUMARATE [Suspect]
     Active Substance: TENOFOVIR DISOPROXIL FUMARATE
     Indication: HIV infection
     Dosage: 300 MG, FOR THE PAST 2 MONTHS
  3. EFAVIRENZ [Suspect]
     Active Substance: EFAVIRENZ
     Indication: HIV infection
     Dosage: 600 MG, FOR THE PAST 2 MONTHS

REACTIONS (8)
  - Kaposi^s sarcoma [Unknown]
  - Immune reconstitution inflammatory syndrome associated Kaposi^s sarcoma [Unknown]
  - Rash [Unknown]
  - Skin plaque [Unknown]
  - Skin hyperpigmentation [Unknown]
  - Skin mass [Unknown]
  - Gingival hypertrophy [Unknown]
  - Skin lesion [Unknown]
